FAERS Safety Report 9943772 (Version 1)
Quarter: 2014Q1

REPORT INFORMATION
  Report Type: Spontaneous
  Country: US (occurrence: US)
  Receive Date: 20140303
  Receipt Date: 20140303
  Transmission Date: 20141002
  Serious: Yes (Death, Other)
  Sender: FDA-Public Use
  Company Number: US-ACTELION-A-US2014-95186

PATIENT
  Age: 70 Year
  Sex: Male

DRUGS (1)
  1. TRACLEER [Suspect]
     Indication: PULMONARY ARTERIAL HYPERTENSION
     Dosage: UNK
     Route: 048
     Dates: start: 201401, end: 20140217

REACTIONS (5)
  - Pulmonary arterial hypertension [Fatal]
  - Disease complication [Fatal]
  - Coronary artery disease [Fatal]
  - Arrhythmia [Fatal]
  - Diarrhoea [Unknown]
